FAERS Safety Report 18621047 (Version 3)
Quarter: 2020Q4

REPORT INFORMATION
  Report Type: Report from Study
  Country: NL (occurrence: NL)
  Receive Date: 20201215
  Receipt Date: 20201228
  Transmission Date: 20210114
  Serious: Yes (Death, Hospitalization)
  Sender: FDA-Public Use
  Company Number: NL-CELGENEUS-NLD-20201203693

PATIENT
  Age: 79 Year
  Sex: Female
  Weight: 40 kg

DRUGS (6)
  1. METOCLOPRAMIDE. [Concomitant]
     Active Substance: METOCLOPRAMIDE
     Indication: NAUSEA
     Route: 048
     Dates: start: 20200818, end: 20201103
  2. FUROSEMIDE. [Concomitant]
     Active Substance: FUROSEMIDE
     Indication: DYSPNOEA
     Dosage: 20 MILLIGRAM
     Route: 048
     Dates: start: 20200921, end: 20201030
  3. FUROSEMIDE. [Concomitant]
     Active Substance: FUROSEMIDE
     Indication: UNEVALUABLE EVENT
  4. DECITABINE. [Concomitant]
     Active Substance: DECITABINE
     Indication: ACUTE MYELOID LEUKAEMIA
     Route: 065
     Dates: start: 20200803, end: 20200904
  5. METOCLOPRAMIDE. [Concomitant]
     Active Substance: METOCLOPRAMIDE
     Indication: VOMITING
  6. ENASIDENIB [Suspect]
     Active Substance: ENASIDENIB
     Indication: ACUTE MYELOID LEUKAEMIA
     Dosage: 100 MILLIGRAM
     Route: 048
     Dates: start: 20200605, end: 20201001

REACTIONS (3)
  - Nervous system disorder [Fatal]
  - Cerebrovascular accident [Fatal]
  - Unevaluable event [Unknown]

NARRATIVE: CASE EVENT DATE: 2020
